FAERS Safety Report 7525947-9 (Version None)
Quarter: 2011Q2

REPORT INFORMATION
  Report Type: 
  Country: None (occurrence: None)
  Receive Date: 20110603
  Receipt Date: 20110603
  Transmission Date: 20111010
  Serious: No
  Sender: FDA-Public Use
  Company Number: None

PATIENT
  Age: 81 Year
  Sex: Male
  Weight: 93.8946 kg

DRUGS (2)
  1. LORAZEPAM [Suspect]
     Indication: ANXIETY
     Dosage: 1 TABLET 2 TIMES A DAY
     Dates: start: 20101201
  2. LORAZEPAM [Suspect]
     Indication: ANXIETY
     Dosage: 1 TABLET 2 TIMES A DAY
     Dates: start: 20110520

REACTIONS (16)
  - ABNORMAL BEHAVIOUR [None]
  - GAIT DISTURBANCE [None]
  - DYSPNOEA [None]
  - BALANCE DISORDER [None]
  - CONFUSIONAL STATE [None]
  - FALL [None]
  - PERSONALITY CHANGE [None]
  - DEPRESSION [None]
  - CLUMSINESS [None]
  - SOMNOLENCE [None]
  - ABDOMINAL DISCOMFORT [None]
  - MOOD ALTERED [None]
  - DIZZINESS [None]
  - HEADACHE [None]
  - ASTHENIA [None]
  - DISORIENTATION [None]
